FAERS Safety Report 10990309 (Version 1)
Quarter: 2015Q1

REPORT INFORMATION
  Report Type: Spontaneous
  Country: US (occurrence: None)
  Receive Date: 20150326
  Receipt Date: 20150326
  Transmission Date: 20150721
  Serious: No
  Sender: FDA-Public Use
  Company Number: 1000073157

PATIENT
  Age: 68 Year
  Sex: Female

DRUGS (5)
  1. PROBIOTICS [Concomitant]
     Active Substance: PROBIOTICS NOS
  2. LINZESS [Suspect]
     Active Substance: LINACLOTIDE
     Indication: CONSTIPATION
     Dates: start: 201209
  3. MOBIC [Concomitant]
     Active Substance: MELOXICAM
  4. FLAXSEED OIL (LINUM USITATISSIMUM SEED OIL) [Concomitant]
  5. MORPHINE [Concomitant]
     Active Substance: MORPHINE

REACTIONS (1)
  - Constipation [None]
